FAERS Safety Report 16710816 (Version 1)
Quarter: 2019Q3

REPORT INFORMATION
  Report Type: Spontaneous
  Country: US (occurrence: US)
  Receive Date: 20190816
  Receipt Date: 20190816
  Transmission Date: 20191004
  Serious: Yes (Hospitalization, Other)
  Sender: FDA-Public Use
  Company Number: US-VELOXIS PHARMACEUTICALS-2019VELUS-000092

PATIENT
  Age: 17 Year
  Sex: Male

DRUGS (1)
  1. ENVARSUS XR [Suspect]
     Active Substance: TACROLIMUS
     Route: 048

REACTIONS (4)
  - Acarodermatitis [Unknown]
  - Off label use [Unknown]
  - Dermatitis bullous [Unknown]
  - Staphylococcal infection [Unknown]
